FAERS Safety Report 11923268 (Version 1)
Quarter: 2016Q1

REPORT INFORMATION
  Report Type: Spontaneous
  Country: JP (occurrence: JP)
  Receive Date: 20160118
  Receipt Date: 20160118
  Transmission Date: 20160526
  Serious: Yes (Death, Life-Threatening, Hospitalization)
  Sender: FDA-Public Use
  Company Number: JP-ROCHE-1676486

PATIENT
  Age: 65 Year
  Sex: Female
  Weight: 40 kg

DRUGS (8)
  1. AVASTIN [Suspect]
     Active Substance: BEVACIZUMAB
     Indication: MALIGNANT PERITONEAL NEOPLASM
     Route: 041
     Dates: start: 20150930, end: 20151113
  2. GASTER [Concomitant]
     Active Substance: FAMOTIDINE
     Indication: PREMEDICATION
     Route: 042
     Dates: start: 20150930, end: 20151120
  3. LASIX [Concomitant]
     Active Substance: FUROSEMIDE
     Route: 048
     Dates: start: 20150812, end: 20151122
  4. METOCLOPRAMIDE. [Concomitant]
     Active Substance: METOCLOPRAMIDE
     Route: 048
     Dates: start: 20151101, end: 20151122
  5. DEXART [Concomitant]
     Active Substance: DEXAMETHASONE SODIUM PHOSPHATE
     Indication: PREMEDICATION
     Route: 042
     Dates: start: 20150930, end: 20151120
  6. MOSAPRIDE CITRATE [Concomitant]
     Active Substance: MOSAPRIDE CITRATE
     Dosage: REPORTED AS MOSAPRIDE CITRATE HYDRATE
     Route: 048
     Dates: start: 20150805, end: 20151122
  7. PACLITAXEL. [Concomitant]
     Active Substance: PACLITAXEL
     Indication: MALIGNANT PERITONEAL NEOPLASM
     Route: 041
     Dates: start: 20150930, end: 20151120
  8. RESTAMIN [Concomitant]
     Active Substance: DIPHENHYDRAMINE
     Indication: PREMEDICATION
     Route: 048
     Dates: start: 20150930, end: 20151120

REACTIONS (2)
  - Malignant peritoneal neoplasm [Fatal]
  - Gastrointestinal necrosis [Recovering/Resolving]

NARRATIVE: CASE EVENT DATE: 20151123
